FAERS Safety Report 16351699 (Version 1)
Quarter: 2019Q2

REPORT INFORMATION
  Report Type: Spontaneous
  Country: US (occurrence: US)
  Receive Date: 20190524
  Receipt Date: 20190524
  Transmission Date: 20190711
  Serious: No
  Sender: FDA-Public Use
  Company Number: US-NOVEN PHARMACEUTICALS, INC.-US2018000274

PATIENT

DRUGS (5)
  1. DAYTRANA [Suspect]
     Active Substance: METHYLPHENIDATE
     Indication: ATTENTION DEFICIT/HYPERACTIVITY DISORDER
     Dosage: 10 MG, UNKNOWN
     Route: 062
  2. DAYTRANA [Suspect]
     Active Substance: METHYLPHENIDATE
     Dosage: 30 MG, UNKNOWN
     Route: 062
  3. DAYTRANA [Suspect]
     Active Substance: METHYLPHENIDATE
     Dosage: 40 MG, APPLYING TWO PATCHES OF 20 MG, UNKNOWN
     Route: 062
  4. DAYTRANA [Suspect]
     Active Substance: METHYLPHENIDATE
     Dosage: 20 MG, UNKNOWN
     Route: 062
  5. DAYTRANA [Suspect]
     Active Substance: METHYLPHENIDATE
     Dosage: 40 MG, APPLYING TWO PATCHES OF 20 MG, UNKNOWN
     Route: 062

REACTIONS (9)
  - Off label use [Not Recovered/Not Resolved]
  - Educational problem [Not Recovered/Not Resolved]
  - Disturbance in attention [Not Recovered/Not Resolved]
  - Product quality issue [Unknown]
  - Wrong technique in product usage process [Not Recovered/Not Resolved]
  - Drug ineffective [Recovered/Resolved]
  - Prescribed overdose [Not Recovered/Not Resolved]
  - Product adhesion issue [Not Recovered/Not Resolved]
  - Psychomotor hyperactivity [Not Recovered/Not Resolved]
